FAERS Safety Report 15315874 (Version 2)
Quarter: 2018Q4

REPORT INFORMATION
  Report Type: Spontaneous
  Country: US (occurrence: US)
  Receive Date: 20180824
  Receipt Date: 20181122
  Transmission Date: 20190204
  Serious: No
  Sender: FDA-Public Use
  Company Number: PHEH2018US033848

PATIENT
  Sex: Female

DRUGS (2)
  1. EXTAVIA [Suspect]
     Active Substance: INTERFERON BETA-1B
     Dosage: UNK
     Route: 065
  2. EXTAVIA [Suspect]
     Active Substance: INTERFERON BETA-1B
     Indication: PRODUCT USED FOR UNKNOWN INDICATION
     Dosage: 0.3 MG, QD
     Route: 065

REACTIONS (8)
  - Memory impairment [Unknown]
  - Balance disorder [Unknown]
  - Product quality issue [Unknown]
  - Drug ineffective [Unknown]
  - Sleep disorder [Unknown]
  - Feeling abnormal [Unknown]
  - Fall [Unknown]
  - Hypoaesthesia [Unknown]
